FAERS Safety Report 21664833 (Version 1)
Quarter: 2022Q4

REPORT INFORMATION
  Report Type: Spontaneous
  Country: US (occurrence: None)
  Receive Date: 20221130
  Receipt Date: 20221130
  Transmission Date: 20230112
  Serious: Yes (Hospitalization)
  Sender: FDA-Public Use
  Company Number: None

PATIENT
  Age: 76 Year
  Sex: Female
  Weight: 67.49 kg

DRUGS (14)
  1. LENALIDOMIDE [Suspect]
     Active Substance: LENALIDOMIDE
     Indication: Plasma cell myeloma
     Dosage: OTHER FREQUENCY : 14DON7DOFF;?
     Route: 048
     Dates: start: 202207
  2. ACYCLOVIR [Concomitant]
  3. ALBUTEROL [Concomitant]
     Active Substance: ALBUTEROL
  4. ASPIRIN [Concomitant]
  5. COMPAZINE [Concomitant]
  6. DEXAMETHASONE [Concomitant]
  7. FAMOTIDINE [Concomitant]
  8. FLONASE [Concomitant]
  9. FOLIC ACID [Concomitant]
  10. LORAZEPAM [Concomitant]
     Active Substance: LORAZEPAM
  11. METOPROLOL ER [Concomitant]
  12. PANTOPRAZOLE [Concomitant]
  13. ROSUVASTATIN [Concomitant]
  14. VITAMIN B12 [Concomitant]
     Active Substance: CYANOCOBALAMIN

REACTIONS (3)
  - Pneumonia [None]
  - COVID-19 [None]
  - Therapy interrupted [None]
